FAERS Safety Report 12119824 (Version 1)
Quarter: 2016Q1

REPORT INFORMATION
  Report Type: Report from Study
  Country: BR (occurrence: BR)
  Receive Date: 20160226
  Receipt Date: 20160226
  Transmission Date: 20160526
  Serious: Yes (Hospitalization)
  Sender: FDA-Public Use
  Company Number: BR-UCBSA-2015035985

PATIENT
  Age: 42 Year
  Sex: Female
  Weight: 103 kg

DRUGS (3)
  1. CERTOLIZUMAB PEGOL [Suspect]
     Active Substance: CERTOLIZUMAB PEGOL
     Dosage: 200 MG, EV 15 DAYS
     Dates: start: 201508, end: 2015
  2. CERTOLIZUMAB PEGOL [Suspect]
     Active Substance: CERTOLIZUMAB PEGOL
     Indication: RHEUMATOID ARTHRITIS
     Dosage: 400 MG, UNK
     Dates: start: 20150804, end: 201508
  3. LOSARTAN. [Concomitant]
     Active Substance: LOSARTAN
     Indication: BLOOD PRESSURE INCREASED
     Dosage: 50 MG, 2X/DAY (BID)
     Route: 048
     Dates: start: 2008

REACTIONS (13)
  - Cough [Not Recovered/Not Resolved]
  - Pain in extremity [Not Recovered/Not Resolved]
  - Neuralgia [Not Recovered/Not Resolved]
  - Blood pressure increased [Not Recovered/Not Resolved]
  - Dengue fever [Recovering/Resolving]
  - Unevaluable event [Not Recovered/Not Resolved]
  - Drug ineffective [Unknown]
  - Chest pain [Unknown]
  - Influenza [Not Recovered/Not Resolved]
  - Sinusitis [Recovered/Resolved]
  - Gait disturbance [Not Recovered/Not Resolved]
  - Arthralgia [Not Recovered/Not Resolved]
  - Drug dose omission [Unknown]

NARRATIVE: CASE EVENT DATE: 201508
